FAERS Safety Report 5791717-5 (Version None)
Quarter: 2008Q2

REPORT INFORMATION
  Report Type: 
  Country: None (occurrence: None)
  Receive Date: 20080626
  Receipt Date: 20080310
  Transmission Date: 20081010
  Serious: No
  Sender: FDA-Public Use
  Company Number: A0714199A

PATIENT
  Age: 63 Year
  Sex: Female

DRUGS (2)
  1. ALLI [Suspect]
     Dates: end: 20080306
  2. LYSINE [Concomitant]

REACTIONS (1)
  - EXFOLIATIVE RASH [None]
